FAERS Safety Report 5962527-0 (Version None)
Quarter: 2008Q4

REPORT INFORMATION
  Report Type: 
  Country: None (occurrence: None)
  Receive Date: 20081121
  Receipt Date: 20081117
  Transmission Date: 20090506
  Serious: Yes (Death)
  Sender: FDA-Public Use
  Company Number: PHEH2008US09901

PATIENT
  Sex: Female

DRUGS (2)
  1. MIACALCIN [Suspect]
  2. DIOVAN [Suspect]
     Dosage: 160 MG QD

REACTIONS (1)
  - PANCREATIC CARCINOMA [None]
